FAERS Safety Report 4374674-8 (Version None)
Quarter: 2004Q2

REPORT INFORMATION
  Report Type: 
  Country: None (occurrence: None)
  Receive Date: 20040604
  Receipt Date: 20040524
  Transmission Date: 20050107
  Serious: Yes (Death)
  Sender: FDA-Public Use
  Company Number: 2004034903

PATIENT
  Age: 53 Year
  Sex: Female

DRUGS (19)
  1. ZOLOFT [Suspect]
     Indication: ILL-DEFINED DISORDER
     Dosage: 200 MG (2 IN 1 D),ORAL
     Route: 048
  2. NAVANE [Suspect]
     Indication: ILL-DEFINED DISORDER
     Dosage: 10 MG (1 IN 1 D), ORAL
     Route: 048
  3. VALDECOXIB [Suspect]
     Indication: ILL-DEFINED DISORDER
     Dosage: 20 MG (1 IN 1 D), ORAL
     Route: 048
  4. DOXYLAMINE (DOXYLAMINE) [Suspect]
     Indication: ILL-DEFINED DISORDER
  5. SERETIDE MITE (FLUTICASONE PROPIONATE, SALMETEROL XINAFOATE) [Concomitant]
  6. VICODIN [Concomitant]
  7. METAXALONE (IMETAXALONE) [Concomitant]
  8. OXYBUTYNIN HYDROCHLORIDE (OXYBUTYNIN HYDROCHLORIDE) [Concomitant]
  9. NAPROXEN [Concomitant]
  10. SALBUTAMOL (SALBUTAMOL) [Concomitant]
  11. NITROGLYCERIN [Concomitant]
  12. LEVOTHYROXINE SODIUM [Concomitant]
  13. MONTELUKAST SODIUM (MONTELUKAST SODIUM) [Concomitant]
  14. CANDESARTAN CILEXETIL (CANDESARTAN CILEXETIL) [Concomitant]
  15. ESOMEPRAZOLE (ESOMEPRAZOLE) [Concomitant]
  16. FEXOFENADINE HYDROCHLORIDE [Concomitant]
  17. NICOTINE [Concomitant]
  18. CONJUGATED ESTROGENS [Concomitant]
  19. TRAZODONE HCL [Concomitant]

REACTIONS (3)
  - ARTERIOSCLEROSIS [None]
  - DRUG TOXICITY [None]
  - HYPERTENSION [None]
